FAERS Safety Report 19910675 (Version 1)
Quarter: 2021Q4

REPORT INFORMATION
  Report Type: Report from Study
  Country: BE (occurrence: BE)
  Receive Date: 20211004
  Receipt Date: 20211004
  Transmission Date: 20220303
  Serious: No
  Sender: FDA-Public Use
  Company Number: BE-KARYOPHARM-2021KPT001055

PATIENT
  Age: 20 Year
  Sex: Male

DRUGS (2)
  1. SELINEXOR [Suspect]
     Active Substance: SELINEXOR
     Indication: Diffuse large B-cell lymphoma
     Dosage: 60 MG, 2X/WEEK
     Route: 048
  2. SELINEXOR [Suspect]
     Active Substance: SELINEXOR
     Dosage: UNK
     Route: 048

REACTIONS (2)
  - Diffuse large B-cell lymphoma refractory [Unknown]
  - Thrombocytopenia [Unknown]
